FAERS Safety Report 23324148 (Version 1)
Quarter: 2023Q4

REPORT INFORMATION
  Report Type: Spontaneous
  Country: DE (occurrence: DE)
  Receive Date: 20231221
  Receipt Date: 20231221
  Transmission Date: 20240109
  Serious: Yes (Death, Other)
  Sender: FDA-Public Use
  Company Number: DE-STRIDES ARCOLAB LIMITED-2023SP018847

PATIENT
  Age: 58 Year
  Sex: Female

DRUGS (16)
  1. TACROLIMUS [Suspect]
     Active Substance: TACROLIMUS
     Indication: Prophylaxis against graft versus host disease
     Dosage: UNK
     Route: 065
  2. TACROLIMUS [Suspect]
     Active Substance: TACROLIMUS
     Dosage: UNK (TAPERED DOSE)
     Route: 065
  3. METHOTREXATE [Suspect]
     Active Substance: METHOTREXATE
     Indication: Natural killer-cell leukaemia
     Dosage: UNK (SMILE PROTOCOL)
     Route: 065
  4. ETOPOSIDE [Suspect]
     Active Substance: ETOPOSIDE
     Indication: Natural killer-cell leukaemia
     Dosage: UNK (SMILE PROTOCOL)
     Route: 065
  5. VENETOCLAX [Suspect]
     Active Substance: VENETOCLAX
     Indication: Natural killer-cell leukaemia
     Dosage: 800 MILLIGRAM/DAY
     Route: 065
  6. VENETOCLAX [Suspect]
     Active Substance: VENETOCLAX
     Dosage: UNK (RESTARTED)
     Route: 065
  7. RUXOLITINIB [Suspect]
     Active Substance: RUXOLITINIB
     Indication: Natural killer-cell leukaemia
     Dosage: 15 MILLIGRAM, BID
     Route: 065
  8. RUXOLITINIB [Suspect]
     Active Substance: RUXOLITINIB
     Dosage: UNK (RESTARTED)
     Route: 065
  9. DEXAMETHASONE [Concomitant]
     Active Substance: DEXAMETHASONE
     Indication: Natural killer-cell leukaemia
     Dosage: UNK (SMILE PROTOCOL)
     Route: 065
  10. DEXAMETHASONE [Concomitant]
     Active Substance: DEXAMETHASONE
     Dosage: UNK (GMALL PROTOCOL)
     Route: 065
  11. DEXAMETHASONE [Concomitant]
     Active Substance: DEXAMETHASONE
     Dosage: UNK (INDUCTION THERAPY)
     Route: 065
  12. IFOSFAMIDE [Concomitant]
     Active Substance: IFOSFAMIDE
     Indication: Natural killer-cell leukaemia
     Dosage: UNK (SMILE PROTOCOL)
     Route: 065
  13. PEGASPARGASE [Concomitant]
     Active Substance: PEGASPARGASE
     Indication: Natural killer-cell leukaemia
     Dosage: UNK (SMILE PROTOCOL)
     Route: 065
  14. CYCLOPHOSPHAMIDE [Concomitant]
     Active Substance: CYCLOPHOSPHAMIDE
     Indication: Natural killer-cell leukaemia
     Dosage: UNK (GMALL PROTOCOL)
     Route: 065
  15. IDARUBICIN [Concomitant]
     Active Substance: IDARUBICIN
     Indication: Natural killer-cell leukaemia
     Dosage: UNK (INDUCTION THERAPY)
     Route: 065
  16. VINCRISTINE [Concomitant]
     Active Substance: VINCRISTINE
     Indication: Natural killer-cell leukaemia
     Dosage: UNK (INDUCTION THERAPY)
     Route: 065

REACTIONS (7)
  - Multiple organ dysfunction syndrome [Fatal]
  - Natural killer-cell leukaemia [Fatal]
  - Leukaemia recurrent [Fatal]
  - Neutropenia [Unknown]
  - Thrombocytopenia [Unknown]
  - Oedema [Unknown]
  - Off label use [Unknown]
